FAERS Safety Report 10586219 (Version 1)
Quarter: 2014Q4

REPORT INFORMATION
  Report Type: Spontaneous
  Country: DE (occurrence: DE)
  Receive Date: 20141116
  Receipt Date: 20141116
  Transmission Date: 20150529
  Serious: Yes (Other)
  Sender: FDA-Public Use
  Company Number: DE-DRREDDYS-GER/GER/14/0044363

PATIENT
  Age: 39 Year
  Sex: Female
  Weight: 60 kg

DRUGS (12)
  1. CALCIUM CARBONATE. [Concomitant]
     Active Substance: CALCIUM CARBONATE
     Indication: CALCIUM DEFICIENCY
     Route: 048
     Dates: start: 20131118, end: 20140815
  2. ACETYLSALICYLIC ACID [Concomitant]
     Active Substance: ASPIRIN
     Indication: PROPHYLAXIS OF ABORTION
     Route: 048
     Dates: start: 20131111, end: 20140815
  3. LEVOTHYROXINE SODIUM. [Concomitant]
     Active Substance: LEVOTHYROXINE SODIUM
     Indication: HYPOTHYROIDISM
     Route: 048
     Dates: start: 20131111, end: 20140815
  4. FSME-IMMUN [Concomitant]
     Indication: IMMUNISATION
     Dosage: 3RD VACCINE SHOT
     Route: 030
     Dates: start: 20140414, end: 20140414
  5. SUMATRIPTAN. [Concomitant]
     Active Substance: SUMATRIPTAN
     Indication: MIGRAINE
     Route: 048
  6. DEKRISTOL 20000 I.E. [Concomitant]
     Indication: VITAMIN D DEFICIENCY
     Route: 048
     Dates: start: 20131118, end: 20140815
  7. PROGESTERON [Concomitant]
     Indication: PROPHYLAXIS OF ABORTION
     Route: 048
     Dates: start: 20131118, end: 20140815
  8. LAMOTRIGINE. [Suspect]
     Active Substance: LAMOTRIGINE
     Indication: EPILEPSY
     Route: 048
     Dates: start: 20131111, end: 20140815
  9. FOLSAN 5 MG VON ABBOTT [Concomitant]
     Indication: PROPHYLAXIS OF NEURAL TUBE DEFECT
     Route: 048
     Dates: start: 20131118, end: 20140815
  10. CITALOPRAM [Suspect]
     Active Substance: CITALOPRAM HYDROBROMIDE
     Indication: DEPRESSION
     Route: 048
     Dates: start: 20131118, end: 20140815
  11. FRAXIPARIN [Concomitant]
     Active Substance: NADROPARIN CALCIUM
     Indication: PROPHYLAXIS OF ABORTION
     Route: 058
     Dates: start: 20131201, end: 20140812
  12. ENGERIX B [Concomitant]
     Indication: IMMUNISATION
     Route: 030
     Dates: start: 20131127, end: 20131127

REACTIONS (3)
  - Caesarean section [Unknown]
  - Meconium in amniotic fluid [Unknown]
  - Exposure during pregnancy [Unknown]
